FAERS Safety Report 24336146 (Version 1)
Quarter: 2024Q3

REPORT INFORMATION
  Report Type: Report from Study
  Country: ID (occurrence: ID)
  Receive Date: 20240919
  Receipt Date: 20240919
  Transmission Date: 20241017
  Serious: No
  Sender: ROCHE
  Company Number: ID-ROCHE-3427304

PATIENT
  Age: 26 Year
  Sex: Female

DRUGS (8)
  1. OSELTAMIVIR [Suspect]
     Active Substance: OSELTAMIVIR
     Indication: COVID-19
     Route: 065
  2. ZINC [Concomitant]
     Active Substance: ZINC
  3. VITAMIN C [Concomitant]
     Active Substance: ASCORBIC ACID
  4. DOMPERIDONE [Concomitant]
     Active Substance: DOMPERIDONE
  5. AZITROMISIN [Concomitant]
  6. LANSOPRAZOLE [Concomitant]
     Active Substance: LANSOPRAZOLE
  7. SODIUM CHLORIDE [Concomitant]
     Active Substance: SODIUM CHLORIDE
  8. POVIDONE-IODINE [Concomitant]
     Active Substance: POVIDONE-IODINE

REACTIONS (2)
  - Off label use [Unknown]
  - Diarrhoea [Unknown]
